FAERS Safety Report 6637033 (Version 12)
Quarter: 2013Q1

REPORT INFORMATION
  Report Type: Spontaneous
  Country: US (occurrence: US)
  Receive Date: 20080509
  Receipt Date: 20130128
  Transmission Date: 20140127
  Serious: Yes (Disabling, Other)
  Sender: FDA-Public Use
  Company Number: US-009507513-0805USA00683

PATIENT
  Sex: Female

DRUGS (9)
  1. FOSAMAX [Suspect]
     Indication: DIABETES MELLITUS
     Dosage: 5 MG, QD
     Route: 048
     Dates: start: 20001016
  2. FOSAMAX [Suspect]
     Indication: OSTEOPENIA
     Dosage: 70 MG, QW
     Route: 048
     Dates: start: 20001025, end: 20061021
  3. FOSAMAX [Suspect]
     Dosage: 10 MG, UNK
  4. HORMONES (UNSPECIFIED) [Concomitant]
     Indication: HORMONE REPLACEMENT THERAPY
     Dates: start: 1998
  5. ZOCOR [Concomitant]
     Indication: BLOOD CHOLESTEROL INCREASED
     Dosage: 40 MG, UNK
     Dates: start: 200002, end: 200111
  6. LEVOXYL [Concomitant]
     Indication: HYPOTHYROIDISM
     Dates: start: 200002, end: 200111
  7. AVAPRO [Concomitant]
     Indication: HYPERTENSION
     Dates: start: 200003
  8. THERAPY UNSPECIFIED [Concomitant]
     Indication: DIABETES MELLITUS
     Dates: start: 200003
  9. ALLEGRA [Concomitant]
     Indication: SEASONAL ALLERGY

REACTIONS (46)
  - Jaw disorder [Unknown]
  - Osteonecrosis of jaw [Recovered/Resolved]
  - Fibroma [Unknown]
  - Pain [Unknown]
  - Abscess jaw [Unknown]
  - Herpes zoster [Unknown]
  - Abscess [Unknown]
  - Tremor [Unknown]
  - Rhinorrhoea [Recovering/Resolving]
  - Oral herpes [Unknown]
  - Ulna fracture [Unknown]
  - Meniscus injury [Unknown]
  - Trigger finger [Unknown]
  - Epicondylitis [Unknown]
  - Intervertebral disc protrusion [Unknown]
  - Muscle strain [Unknown]
  - Tooth disorder [Unknown]
  - Limb operation [Unknown]
  - Eye injury [Unknown]
  - Eye disorder [Unknown]
  - Rib fracture [Unknown]
  - Fibrous histiocytoma [Unknown]
  - Seborrhoeic keratosis [Unknown]
  - Helicobacter infection [Unknown]
  - Weight decreased [Unknown]
  - Duodenitis [Unknown]
  - Joint effusion [Unknown]
  - Migraine [Unknown]
  - Diabetic neuropathy [Unknown]
  - Tooth extraction [Unknown]
  - Osteomyelitis chronic [Not Recovered/Not Resolved]
  - Dental implantation [Unknown]
  - Debridement [Unknown]
  - Impaired healing [Unknown]
  - Bone operation [Unknown]
  - Adverse event [Unknown]
  - Diabetes mellitus inadequate control [Unknown]
  - Chest pain [Unknown]
  - Dyspnoea [Unknown]
  - Eczema [Unknown]
  - Cough [Unknown]
  - Coronary artery disease [Unknown]
  - Arthropathy [Unknown]
  - Fall [Unknown]
  - Contusion [Unknown]
  - Lip disorder [Unknown]
